FAERS Safety Report 8558112-7 (Version None)
Quarter: 2012Q3

REPORT INFORMATION
  Report Type: 
  Country: None (occurrence: None)
  Receive Date: 20120801
  Receipt Date: 20120725
  Transmission Date: 20120928
  Serious: Yes (Hospitalization, Other)
  Sender: FDA-Public Use
  Company Number: DE-ABBOTT-12P-062-0962275-00

PATIENT
  Sex: Female

DRUGS (2)
  1. HUMIRA [Suspect]
     Indication: ANKYLOSING SPONDYLITIS
     Route: 058
     Dates: start: 20110222, end: 20111025
  2. HUMIRA [Suspect]
     Route: 058
     Dates: start: 20120701

REACTIONS (2)
  - ANKYLOSING SPONDYLITIS [None]
  - PREMATURE LABOUR [None]
